FAERS Safety Report 15703026 (Version 1)
Quarter: 2018Q4

REPORT INFORMATION
  Report Type: Spontaneous
  Country: US (occurrence: US)
  Receive Date: 20181208
  Receipt Date: 20181208
  Transmission Date: 20190205
  Serious: Yes (Hospitalization, Disabling)
  Sender: FDA-Public Use
  Company Number: None

PATIENT
  Age: 21 Year
  Sex: Male
  Weight: 87.3 kg

DRUGS (4)
  1. LEVOTHYROXINE. [Concomitant]
     Active Substance: LEVOTHYROXINE
  2. CORTEF [Concomitant]
     Active Substance: HYDROCORTISONE
  3. VITAMIN D [Concomitant]
     Active Substance: CHOLECALCIFEROL
  4. CORTEF [Suspect]
     Active Substance: HYDROCORTISONE
     Indication: ADRENAL INSUFFICIENCY
     Route: 048
     Dates: start: 20180815, end: 20181119

REACTIONS (3)
  - Product complaint [None]
  - Product physical issue [None]
  - Adrenocortical insufficiency acute [None]

NARRATIVE: CASE EVENT DATE: 20181113
